FAERS Safety Report 9285123 (Version 1)
Quarter: 2013Q2

REPORT INFORMATION
  Report Type: Spontaneous
  Country: IT (occurrence: IT)
  Receive Date: 20130513
  Receipt Date: 20130513
  Transmission Date: 20140414
  Serious: Yes (Death, Other)
  Sender: FDA-Public Use
  Company Number: IT-JNJFOC-20130503795

PATIENT
  Sex: 0

DRUGS (3)
  1. DARUNAVIR [Suspect]
     Indication: HIV INFECTION
     Route: 065
  2. RITONAVIR [Suspect]
     Indication: HIV INFECTION
     Route: 065
  3. UNKNOWN MEDICATION [Interacting]
     Indication: PRODUCT USED FOR UNKNOWN INDICATION
     Route: 065

REACTIONS (14)
  - Death [Fatal]
  - Blood antidiuretic hormone increased [Unknown]
  - Hepatic failure [Unknown]
  - Muscular weakness [Unknown]
  - Blood triglycerides increased [Unknown]
  - Blood creatinine increased [Unknown]
  - Virologic failure [Unknown]
  - Drug interaction [Unknown]
  - Alanine aminotransferase increased [Unknown]
  - Hyperglycaemia [Unknown]
  - Blood cholesterol increased [Unknown]
  - Rash [Unknown]
  - Pruritus [Unknown]
  - Treatment noncompliance [Unknown]
